FAERS Safety Report 7924052-7 (Version None)
Quarter: 2011Q4

REPORT INFORMATION
  Report Type: 
  Country: None (occurrence: None)
  Receive Date: 20111117
  Receipt Date: 20110214
  Transmission Date: 20120403
  Serious: No
  Sender: FDA-Public Use
  Company Number: US-AMGEN-USASP2011008739

PATIENT
  Sex: Female

DRUGS (1)
  1. ENBREL [Suspect]
     Indication: RHEUMATOID ARTHRITIS
     Dosage: 50 MG, QWK
     Dates: start: 20080101, end: 20110201

REACTIONS (6)
  - CONTUSION [None]
  - DRUG DOSE OMISSION [None]
  - BACK PAIN [None]
  - MUSCULOSKELETAL PAIN [None]
  - FATIGUE [None]
  - ARTHRALGIA [None]
